FAERS Safety Report 18367948 (Version 2)
Quarter: 2021Q1

REPORT INFORMATION
  Report Type: Spontaneous
  Country: US (occurrence: US)
  Receive Date: 20201009
  Receipt Date: 20210325
  Transmission Date: 20210419
  Serious: Yes (Other)
  Sender: FDA-Public Use
  Company Number: US-PURDUE-USA-2020-0168963

PATIENT
  Sex: Female

DRUGS (31)
  1. HYDROCODONE BITARTRATE AND ACETAMINOPHEN [Suspect]
     Active Substance: ACETAMINOPHEN\HYDROCODONE BITARTRATE
     Indication: PAIN
  2. OXYCODONE/ ACETAMINOPHEN TABLETS [Suspect]
     Active Substance: ACETAMINOPHEN\OXYCODONE HYDROCHLORIDE
     Indication: PAIN
  3. MS CONTIN [Suspect]
     Active Substance: MORPHINE SULFATE
     Indication: PAIN
  4. TRAMADOL HYDROCHLORIDE. [Suspect]
     Active Substance: TRAMADOL HYDROCHLORIDE
     Indication: ANXIETY
  5. PERCOCET                           /00446701/ [Suspect]
     Active Substance: ACETAMINOPHEN\OXYCODONE HYDROCHLORIDE\OXYCODONE TEREPHTHALATE
     Indication: ANXIETY
  6. HYDROCODONE BITARTRATE AND ACETAMINOPHEN [Suspect]
     Active Substance: ACETAMINOPHEN\HYDROCODONE BITARTRATE
     Indication: MIGRAINE
     Dosage: UNK
     Route: 048
  7. NORCO [Suspect]
     Active Substance: ACETAMINOPHEN\HYDROCODONE BITARTRATE
     Indication: MIGRAINE
     Dosage: UNK
     Route: 065
  8. DILAUDID [Suspect]
     Active Substance: HYDROMORPHONE HYDROCHLORIDE
     Indication: PAIN
  9. HYDROMORPHONE TABLETS [Suspect]
     Active Substance: HYDROMORPHONE
     Indication: MIGRAINE
     Dosage: UNK
     Route: 048
  10. MS CONTIN [Suspect]
     Active Substance: MORPHINE SULFATE
     Indication: MIGRAINE
     Dosage: UNK
     Route: 048
  11. HYDROMORPHONE HCL ORAL SOLUTION (RHODES) [Suspect]
     Active Substance: HYDROMORPHONE HYDROCHLORIDE
     Indication: MIGRAINE
     Dosage: UNK
     Route: 048
  12. HYDROMORPHONE HCL ORAL SOLUTION (RHODES) [Suspect]
     Active Substance: HYDROMORPHONE HYDROCHLORIDE
     Indication: ANXIETY
  13. OXYCONTIN [Suspect]
     Active Substance: OXYCODONE HYDROCHLORIDE
     Indication: PAIN
  14. OXYCODONE/ ACETAMINOPHEN TABLETS [Suspect]
     Active Substance: ACETAMINOPHEN\OXYCODONE HYDROCHLORIDE
     Indication: MIGRAINE
     Dosage: UNK
     Route: 048
  15. HYSINGLA ER [Suspect]
     Active Substance: HYDROCODONE BITARTRATE
     Indication: MIGRAINE
     Dosage: UNK
     Route: 048
  16. PERCOCET                           /00446701/ [Suspect]
     Active Substance: ACETAMINOPHEN\OXYCODONE HYDROCHLORIDE\OXYCODONE TEREPHTHALATE
     Indication: MIGRAINE
     Dosage: UNK
     Route: 065
  17. HYSINGLA ER [Suspect]
     Active Substance: HYDROCODONE BITARTRATE
     Indication: ANXIETY
  18. BUPRENORPHINE TRANSDERMAL PATCH (SIMILAR TO NDA 21?306) [Suspect]
     Active Substance: BUPRENORPHINE
     Indication: MIGRAINE
     Dosage: UNK
     Route: 062
  19. MORPHINE SULFATE EXTENDED?RELEASE TABLETS (RHODES 74?769, 74?862) [Suspect]
     Active Substance: MORPHINE SULFATE
     Indication: ANXIETY
  20. TRAMADOL HYDROCHLORIDE. [Suspect]
     Active Substance: TRAMADOL HYDROCHLORIDE
     Indication: MIGRAINE
     Dosage: UNK
     Route: 048
  21. NORCO [Suspect]
     Active Substance: ACETAMINOPHEN\HYDROCODONE BITARTRATE
     Indication: ANXIETY
  22. VICODIN [Suspect]
     Active Substance: ACETAMINOPHEN\HYDROCODONE BITARTRATE
     Indication: MIGRAINE
     Dosage: UNK
     Route: 065
  23. OXYCODONE HCL CR TABLETS (SIMILAR TO NDA 22?272) [Suspect]
     Active Substance: OXYCODONE HYDROCHLORIDE
     Indication: MIGRAINE
     Dosage: UNK
     Route: 048
  24. OXYCODONE HCL TABLETS (RHODES 91?490) [Suspect]
     Active Substance: OXYCODONE HYDROCHLORIDE
     Indication: MIGRAINE
     Dosage: UNK
     Route: 048
  25. VICODIN [Suspect]
     Active Substance: ACETAMINOPHEN\HYDROCODONE BITARTRATE
     Indication: ANXIETY
  26. OXYCONTIN [Suspect]
     Active Substance: OXYCODONE HYDROCHLORIDE
     Indication: MIGRAINE
     Dosage: 60 MG, Q6H
     Route: 048
  27. DILAUDID [Suspect]
     Active Substance: HYDROMORPHONE HYDROCHLORIDE
     Indication: MIGRAINE
     Dosage: UNK
     Route: 048
  28. HYDROMORPHONE TABLETS [Suspect]
     Active Substance: HYDROMORPHONE
     Indication: PAIN
  29. OXYCODONE HCL CR TABLETS (SIMILAR TO NDA 22?272) [Suspect]
     Active Substance: OXYCODONE HYDROCHLORIDE
     Indication: PAIN
  30. OXYCODONE HCL TABLETS (RHODES 91?490) [Suspect]
     Active Substance: OXYCODONE HYDROCHLORIDE
     Indication: PAIN
  31. MORPHINE SULFATE EXTENDED?RELEASE TABLETS (RHODES 74?769, 74?862) [Suspect]
     Active Substance: MORPHINE SULFATE
     Indication: MIGRAINE
     Dosage: UNK
     Route: 048

REACTIONS (12)
  - Drug dependence [Unknown]
  - Overdose [Unknown]
  - Depression [Unknown]
  - Suicidal ideation [Unknown]
  - Developmental delay [Unknown]
  - Drug withdrawal syndrome neonatal [Unknown]
  - Delirium [Unknown]
  - Learning disability [Unknown]
  - Fear [Unknown]
  - Product prescribing issue [Unknown]
  - Unevaluable event [Unknown]
  - Anxiety [Unknown]
